FAERS Safety Report 11785352 (Version 1)
Quarter: 2015Q4

REPORT INFORMATION
  Report Type: Spontaneous
  Country: US (occurrence: US)
  Receive Date: 20151130
  Receipt Date: 20151130
  Transmission Date: 20160305
  Serious: No
  Sender: FDA-Public Use
  Company Number: US-JNJFOC-20150926673

PATIENT
  Age: 85 Year
  Sex: Female
  Weight: 61.24 kg

DRUGS (3)
  1. MULTIVITAMINS [Concomitant]
     Active Substance: VITAMINS
     Indication: VITAMIN SUPPLEMENTATION
     Route: 065
  2. TYLENOL REGULAR STRENGTH [Suspect]
     Active Substance: ACETAMINOPHEN
     Indication: PAIN
     Dosage: AS NEEDED, TYPICALLY 1 TABLET, EVERY OTHER DAY
     Route: 048
  3. TYLENOL REGULAR STRENGTH [Suspect]
     Active Substance: ACETAMINOPHEN
     Indication: FATIGUE
     Dosage: AS NEEDED, TYPICALLY 1 TABLET, EVERY OTHER DAY
     Route: 048

REACTIONS (3)
  - Product use issue [Unknown]
  - Underdose [Unknown]
  - Drug ineffective [Unknown]
